FAERS Safety Report 14890178 (Version 3)
Quarter: 2018Q4

REPORT INFORMATION
  Report Type: Spontaneous
  Country: US (occurrence: US)
  Receive Date: 20180514
  Receipt Date: 20181123
  Transmission Date: 20190204
  Serious: Yes (Other)
  Sender: FDA-Public Use
  Company Number: US-PFIZER INC-2018045806

PATIENT
  Age: 68 Year
  Sex: Female
  Weight: 68.95 kg

DRUGS (20)
  1. TIKOSYN [Suspect]
     Active Substance: DOFETILIDE
     Dosage: 4 DF, DAILY
  2. TIKOSYN [Suspect]
     Active Substance: DOFETILIDE
     Dosage: 0.125 MG, UNK
  3. RESTASIS [Concomitant]
     Active Substance: CYCLOSPORINE
     Indication: DRY EYE
     Dosage: UNK
  4. TRAVATAN Z [Concomitant]
     Active Substance: TRAVOPROST
     Indication: GLAUCOMA
     Dosage: UNK (0.04 %)
  5. WARFARIN [Concomitant]
     Active Substance: WARFARIN
     Dosage: UNK (7.5 EVERY DAY)
  6. IMURAN [Concomitant]
     Active Substance: AZATHIOPRINE
     Indication: SYSTEMIC LUPUS ERYTHEMATOSUS
     Dosage: 50 MG, 2X/DAY(ONE IN THE MORNING ONE AT NIGHT)
  7. TIKOSYN [Suspect]
     Active Substance: DOFETILIDE
     Indication: ATRIAL FIBRILLATION
     Dosage: 1 DF, DAILY (8:00 AM)
     Route: 048
  8. SERTRALINE [Concomitant]
     Active Substance: SERTRALINE HYDROCHLORIDE
     Dosage: 200 MG, 1X/DAY (AT BED TIME)
  9. LEVOTHYROXINE. [Concomitant]
     Active Substance: LEVOTHYROXINE
     Dosage: 175 UG, UNK
  10. CHLORTHALIDONE. [Concomitant]
     Active Substance: CHLORTHALIDONE
     Indication: BLOOD PRESSURE MEASUREMENT
     Dosage: 25 MG, 1X/DAY
  11. SIMBRINZA [Concomitant]
     Active Substance: BRIMONIDINE TARTRATE\BRINZOLAMIDE
     Dosage: UNK
  12. CANDESARTAN. [Concomitant]
     Active Substance: CANDESARTAN
     Dosage: 16 MG, 2X/DAY (IT IS 32 MG BUT I BREAK IT IN HALF AND I TAKE HALF IN THE MORNING AND HALF AT NIGHT)
  13. POTASSIUM [Concomitant]
     Active Substance: POTASSIUM
     Dosage: 40 MEQ, 2X/DAY [TWO IN THE AM AND TWO IN THE PM]
  14. CLONAZEPAM. [Concomitant]
     Active Substance: CLONAZEPAM
     Dosage: 0.25 MG, 2X/DAY [TAKE A HALF IN THE MORNING AND A HALF LATER ON IN THE AFTERNOON]
  15. ESTRACE [Concomitant]
     Active Substance: ESTRADIOL
     Indication: VULVOVAGINAL DRYNESS
     Dosage: UNK UNK, 2X/WEEK
  16. TIKOSYN [Suspect]
     Active Substance: DOFETILIDE
     Indication: BLOOD PRESSURE MEASUREMENT
     Dosage: 0.125 MG, 2X/DAY
     Route: 048
     Dates: start: 20180124
  17. OMEPRAZOLE. [Concomitant]
     Active Substance: OMEPRAZOLE
     Dosage: 40 MG, UNK (ONCE IN THE MORNING AND ONCE AT NIGHT)
  18. SINGULAIR [Concomitant]
     Active Substance: MONTELUKAST SODIUM
     Dosage: 10 MG, 1X/DAY (AT NIGHT TIME)
  19. TIKOSYN [Suspect]
     Active Substance: DOFETILIDE
     Dosage: 2 DF, DAILY
  20. VITAMIN D [Concomitant]
     Active Substance: CHOLECALCIFEROL
     Dosage: UNK (2000)

REACTIONS (8)
  - Tachycardia [Recovering/Resolving]
  - Drug ineffective [Unknown]
  - Blood pressure decreased [Recovered/Resolved]
  - Haematoma [Recovering/Resolving]
  - Carotid artery occlusion [Unknown]
  - Cardiac valve disease [Unknown]
  - Bradycardia [Recovering/Resolving]
  - Weight increased [Unknown]

NARRATIVE: CASE EVENT DATE: 20180501
